FAERS Safety Report 6007862-5 (Version None)
Quarter: 2008Q4

REPORT INFORMATION
  Report Type: 
  Country: None (occurrence: None)
  Receive Date: 20081217
  Receipt Date: 20080707
  Transmission Date: 20090506
  Serious: No
  Sender: FDA-Public Use
  Company Number: US-ASTRAZENECA-2008UW13546

PATIENT
  Age: 59 Year
  Sex: Female
  Weight: 90.7 kg

DRUGS (6)
  1. CRESTOR [Suspect]
     Indication: BLOOD CHOLESTEROL INCREASED
     Route: 048
     Dates: start: 20080701, end: 20080705
  2. ASPIRIN [Concomitant]
  3. HYDROCHLOROTHIAZIDE [Concomitant]
     Route: 048
  4. EXFORGE [Concomitant]
     Dosage: 5/320
  5. ASCORBIC ACID [Concomitant]
  6. MULTI-VITAMINS [Concomitant]

REACTIONS (3)
  - FATIGUE [None]
  - GAIT DISTURBANCE [None]
  - MYALGIA [None]
